FAERS Safety Report 14835796 (Version 2)
Quarter: 2018Q2

REPORT INFORMATION
  Report Type: Spontaneous
  Country: BR (occurrence: BR)
  Receive Date: 20180502
  Receipt Date: 20180625
  Transmission Date: 20180711
  Serious: Yes (Hospitalization, Other)
  Sender: FDA-Public Use
  Company Number: BR-ABBVIE-18P-020-2339817-00

PATIENT
  Age: 8 Month
  Sex: Male
  Weight: 9 kg

DRUGS (1)
  1. KLARICID [Suspect]
     Active Substance: CLARITHROMYCIN
     Indication: BRONCHITIS
     Route: 048
     Dates: start: 20180412

REACTIONS (11)
  - Pyrexia [Not Recovered/Not Resolved]
  - Product colour issue [Unknown]
  - Pneumonia [Recovering/Resolving]
  - Cardiac arrest [Recovered/Resolved]
  - General physical health deterioration [Unknown]
  - Product expiration date issue [Unknown]
  - Bacteraemia [Unknown]
  - Product storage error [Unknown]
  - Hypersensitivity [Unknown]
  - Oropharyngeal pain [Unknown]
  - Expired product administered [Unknown]

NARRATIVE: CASE EVENT DATE: 20180412
